FAERS Safety Report 12797429 (Version 1)
Quarter: 2016Q3

REPORT INFORMATION
  Report Type: Other
  Country: FR (occurrence: FR)
  Receive Date: 20160930
  Receipt Date: 20160930
  Transmission Date: 20161109
  Serious: Yes (Hospitalization, Other)
  Sender: FDA-Public Use
  Company Number: FR-ASTELLAS-2016US037357

PATIENT
  Age: 75 Year
  Sex: Female
  Weight: 50 kg

DRUGS (3)
  1. ROVALCYTE [Suspect]
     Active Substance: VALGANCICLOVIR HYDROCHLORIDE
     Indication: PRODUCT USED FOR UNKNOWN INDICATION
     Dosage: 450 MG, EVERY 2 WEEKS (MONDAY AND THURSDAY)
     Route: 048
     Dates: end: 20160706
  2. ROVALCYTE [Suspect]
     Active Substance: VALGANCICLOVIR HYDROCHLORIDE
     Dosage: UNK, UNKNOWN FREQ.
     Route: 065
     Dates: start: 20160818
  3. ADVAGRAF [Suspect]
     Active Substance: TACROLIMUS
     Indication: PROPHYLAXIS AGAINST TRANSPLANT REJECTION
     Dosage: 7 MG, ONCE DAILY (IN THE MORNING)
     Route: 048
     Dates: end: 20160706

REACTIONS (6)
  - Vascular encephalopathy [Unknown]
  - Confusional state [Recovered/Resolved]
  - Status epilepticus [Unknown]
  - Disorientation [Unknown]
  - Immunosuppressant drug level increased [Unknown]
  - Agitation [Unknown]

NARRATIVE: CASE EVENT DATE: 201606
